FAERS Safety Report 23185619 (Version 1)
Quarter: 2023Q4

REPORT INFORMATION
  Report Type: Spontaneous
  Country: FR (occurrence: FR)
  Receive Date: 20231115
  Receipt Date: 20231115
  Transmission Date: 20240110
  Serious: Yes (Other)
  Sender: FDA-Public Use
  Company Number: None

PATIENT
  Age: 76 Year
  Sex: Male
  Weight: 72 kg

DRUGS (1)
  1. PLUVICTO [Suspect]
     Active Substance: LUTETIUM LU-177 VIPIVOTIDE TETRAXETAN
     Indication: Prostate cancer
     Dosage: 7.4 GBQ
     Route: 042
     Dates: start: 20230531, end: 20231004

REACTIONS (2)
  - Eye pain [Not Recovered/Not Resolved]
  - Xerophthalmia [Not Recovered/Not Resolved]

NARRATIVE: CASE EVENT DATE: 20230101
